FAERS Safety Report 18957188 (Version 1)
Quarter: 2021Q1

REPORT INFORMATION
  Report Type: Spontaneous
  Country: US (occurrence: US)
  Receive Date: 20210301
  Receipt Date: 20210301
  Transmission Date: 20210420
  Serious: Yes (Hospitalization)
  Sender: FDA-Public Use
  Company Number: None

PATIENT
  Age: 10 Year
  Sex: Female
  Weight: 28.6 kg

DRUGS (1)
  1. SULFAMETHOXAZOLE/TRIMETHOPRIM SUSPENSION [Suspect]
     Active Substance: SULFAMETHOXAZOLE\TRIMETHOPRIM
     Indication: STAPHYLOCOCCAL INFECTION
     Dosage: ?          OTHER ROUTE:G?TUBE?
     Dates: start: 20210217, end: 20210227

REACTIONS (2)
  - Rash morbilliform [None]
  - Rash [None]

NARRATIVE: CASE EVENT DATE: 20210226
